FAERS Safety Report 10020996 (Version 1)
Quarter: 2014Q1

REPORT INFORMATION
  Report Type: Spontaneous
  Country: BR (occurrence: BR)
  Receive Date: 20140319
  Receipt Date: 20140319
  Transmission Date: 20141002
  Serious: Yes (Death)
  Sender: FDA-Public Use
  Company Number: BR-ASTELLAS-2014US002708

PATIENT
  Age: 12 Year
  Sex: Female

DRUGS (7)
  1. AMBISOME [Suspect]
     Indication: ASPERGILLUS INFECTION
     Dosage: UNK
     Route: 065
  2. METHYLPREDNISOLONE [Concomitant]
     Indication: SYSTEMIC LUPUS ERYTHEMATOSUS
     Dosage: 1 G, UID/QD FOR 3 DAYS
     Route: 065
  3. CEFTRIAXONE [Concomitant]
     Indication: SEPTIC SHOCK
     Dosage: UNK
     Route: 065
  4. VANCOMYCIN [Concomitant]
     Indication: SEPTIC SHOCK
     Dosage: UNK
     Route: 065
  5. MEROPENEM [Concomitant]
     Indication: SEPTIC SHOCK
     Dosage: UNK
     Route: 065
  6. GANCICLOVIR [Concomitant]
     Indication: SEPTIC SHOCK
     Dosage: UNK
     Route: 065
  7. IMMUNOGLOBULIN                     /00025201/ [Concomitant]
     Indication: SEPTIC SHOCK
     Dosage: 2 UG/KG, UNKNOWN/D
     Route: 042

REACTIONS (1)
  - Drug ineffective [Fatal]
